FAERS Safety Report 25518796 (Version 3)
Quarter: 2025Q3

REPORT INFORMATION
  Report Type: Spontaneous
  Country: GB (occurrence: GB)
  Receive Date: 20250704
  Receipt Date: 20250729
  Transmission Date: 20251021
  Serious: Yes (Life-Threatening, Hospitalization, Other)
  Sender: AUROBINDO
  Company Number: GB-MLMSERVICE-20250611-PI540678-00029-1

PATIENT
  Age: 3 Decade
  Sex: Female

DRUGS (3)
  1. ACETAMINOPHEN [Suspect]
     Active Substance: ACETAMINOPHEN
     Indication: Product used for unknown indication
     Dosage: 34 GRAM, ONCE A DAY
     Route: 048
  2. CODEINE PHOSPHATE [Suspect]
     Active Substance: CODEINE PHOSPHATE
     Indication: Product used for unknown indication
     Dosage: 20.4 GRAM, ONCE A DAY
     Route: 048
  3. MIRTAZAPINE [Suspect]
     Active Substance: MIRTAZAPINE
     Indication: Product used for unknown indication
     Dosage: 420 MILLIGRAM, ONCE A DAY
     Route: 048

REACTIONS (12)
  - Vasoplegia syndrome [Unknown]
  - Acute hepatic failure [Recovering/Resolving]
  - Metabolic acidosis [Recovering/Resolving]
  - Brain oedema [Recovered/Resolved]
  - Intracranial pressure increased [Recovered/Resolved]
  - IIIrd nerve paralysis [Recovered/Resolved]
  - Hepatic encephalopathy [Recovered/Resolved]
  - Thrombocytopenia [Recovering/Resolving]
  - Coagulopathy [Recovering/Resolving]
  - Hypertransaminasaemia [Recovering/Resolving]
  - Intentional overdose [Recovering/Resolving]
  - Toxicity to various agents [Recovering/Resolving]
